FAERS Safety Report 16067935 (Version 1)
Quarter: 2019Q1

REPORT INFORMATION
  Report Type: Spontaneous
  Country: JP (occurrence: JP)
  Receive Date: 20190313
  Receipt Date: 20190313
  Transmission Date: 20190418
  Serious: Yes (Other)
  Sender: FDA-Public Use
  Company Number: JP-ASTRAZENECA-2019SE16119

PATIENT
  Age: 75 Year

DRUGS (1)
  1. IMFINZI [Suspect]
     Active Substance: DURVALUMAB
     Indication: NON-SMALL CELL LUNG CANCER
     Route: 041
     Dates: start: 20180926, end: 20190201

REACTIONS (2)
  - Bronchial fistula [Recovered/Resolved]
  - Metastases to lymph nodes [Unknown]

NARRATIVE: CASE EVENT DATE: 20181228
